FAERS Safety Report 7207216-X (Version None)
Quarter: 2011Q1

REPORT INFORMATION
  Report Type: 
  Country: None (occurrence: None)
  Receive Date: 20110103
  Receipt Date: 20101221
  Transmission Date: 20110831
  Serious: Yes (Hospitalization)
  Sender: FDA-Public Use
  Company Number: HU-ROCHE-749652

PATIENT
  Sex: Female
  Weight: 84 kg

DRUGS (3)
  1. CIPROFLOXACIN [Concomitant]
     Dates: start: 20101130, end: 20101204
  2. TEMOZOLOMIDE [Suspect]
     Indication: GLIOBLASTOMA
     Dosage: FREQUENCY: FIXED 5 DAY PER CYCLE, LAST DOSE PRIOR TO SAE: 20 NOV 2010, TEMPORARILY INTERRUPTED
     Route: 048
     Dates: start: 20101116
  3. PLACEBO [Suspect]
     Indication: GLIOBLASTOMA
     Dosage: FORM: 400MG/VIAL,  LAST DOSE PRIOR TO SAE: 30 NOV 2010, TEMPORARILY INTERRUPTED.
     Route: 042
     Dates: start: 20100901

REACTIONS (1)
  - HYPOALBUMINAEMIA [None]
